FAERS Safety Report 7987665-2 (Version None)
Quarter: 2011Q4

REPORT INFORMATION
  Report Type: 
  Country: None (occurrence: None)
  Receive Date: 20111216
  Receipt Date: 20111212
  Transmission Date: 20120403
  Serious: Yes (Hospitalization, Other)
  Sender: FDA-Public Use
  Company Number: DE-ABBOTT-11P-062-0856408-00

PATIENT
  Sex: Male
  Weight: 84 kg

DRUGS (1)
  1. HUMIRA [Suspect]
     Indication: PSORIATIC ARTHROPATHY
     Dosage: LONGER PERIOD  THAN EVERY OTHER WEEK
     Route: 058
     Dates: start: 20081113, end: 20110801

REACTIONS (3)
  - BURSA DISORDER [None]
  - ARTHROPATHY [None]
  - PAIN [None]
